FAERS Safety Report 13409861 (Version 3)
Quarter: 2017Q2

REPORT INFORMATION
  Report Type: Spontaneous
  Country: US (occurrence: US)
  Receive Date: 20170406
  Receipt Date: 20170606
  Transmission Date: 20170830
  Serious: Yes (Other)
  Sender: FDA-Public Use
  Company Number: US-PFIZER INC-2017144949

PATIENT
  Age: 65 Year
  Sex: Female

DRUGS (2)
  1. IBRANCE [Suspect]
     Active Substance: PALBOCICLIB
     Indication: BREAST CANCER FEMALE
     Dosage: 125 MG, CYCLIC (ONCE A DAY/QD FOR 21 DAYS ON AND 7 DAYS OFF)
     Route: 048
     Dates: start: 20170314
  2. FASLODEX [Concomitant]
     Active Substance: FULVESTRANT
     Dosage: UNK

REACTIONS (5)
  - White blood cell count decreased [Unknown]
  - Dry skin [Unknown]
  - Abdominal discomfort [Unknown]
  - Neutropenia [Not Recovered/Not Resolved]
  - Rash [Unknown]
